FAERS Safety Report 19862953 (Version 3)
Quarter: 2022Q1

REPORT INFORMATION
  Report Type: Report from Study
  Country: DE (occurrence: DE)
  Receive Date: 20210921
  Receipt Date: 20220214
  Transmission Date: 20220423
  Serious: Yes (Hospitalization, Other)
  Sender: FDA-Public Use
  Company Number: DE-UCBSA-2021043626

PATIENT
  Sex: Female

DRUGS (1)
  1. CERTOLIZUMAB PEGOL [Suspect]
     Active Substance: CERTOLIZUMAB PEGOL
     Indication: Rheumatoid arthritis
     Dosage: 200 MILLIGRAM, EV 3 WEEKS
     Dates: start: 201410

REACTIONS (8)
  - Paraparesis [Recovered/Resolved]
  - Neurogenic bladder [Recovered/Resolved]
  - Oesophageal candidiasis [Unknown]
  - Spinal stenosis [Recovered/Resolved]
  - Fall [Unknown]
  - Escherichia urinary tract infection [Unknown]
  - Iron deficiency anaemia [Unknown]
  - Decubitus ulcer [Unknown]

NARRATIVE: CASE EVENT DATE: 20210205
